FAERS Safety Report 15348412 (Version 1)
Quarter: 2018Q3

REPORT INFORMATION
  Report Type: Report from Study
  Country: US (occurrence: US)
  Receive Date: 20180904
  Receipt Date: 20180904
  Transmission Date: 20181010
  Serious: Yes (Hospitalization)
  Sender: FDA-Public Use
  Company Number: US-ASTELLAS-2017US011817

PATIENT
  Age: 68 Year
  Sex: Female

DRUGS (58)
  1. TACROLIMUS. [Suspect]
     Active Substance: TACROLIMUS
     Route: 042
     Dates: start: 20161101
  2. TACROLIMUS. [Suspect]
     Active Substance: TACROLIMUS
     Route: 042
     Dates: start: 20161107
  3. TACROLIMUS. [Suspect]
     Active Substance: TACROLIMUS
     Route: 042
     Dates: start: 20161117, end: 20161117
  4. TACROLIMUS. [Suspect]
     Active Substance: TACROLIMUS
     Dosage: 1.5 MG AM, 1 MG PM
     Route: 042
     Dates: start: 20161222
  5. TACROLIMUS. [Suspect]
     Active Substance: TACROLIMUS
     Route: 042
     Dates: start: 20170206
  6. TACROLIMUS. [Suspect]
     Active Substance: TACROLIMUS
     Route: 042
     Dates: start: 20170308
  7. LIPITOR [Concomitant]
     Active Substance: ATORVASTATIN CALCIUM
     Indication: PRODUCT USED FOR UNKNOWN INDICATION
     Route: 048
  8. MAGNESIUM AMINO ACID CHELATE [Concomitant]
     Active Substance: MAGNESIUM
     Indication: HYPOMAGNESAEMIA
  9. NEURONTIN [Concomitant]
     Active Substance: GABAPENTIN
     Indication: NEUROPATHY PERIPHERAL
     Route: 048
  10. TACROLIMUS. [Suspect]
     Active Substance: TACROLIMUS
     Route: 042
     Dates: start: 20161109
  11. TACROLIMUS. [Suspect]
     Active Substance: TACROLIMUS
     Route: 042
     Dates: start: 20161116, end: 20161116
  12. TACROLIMUS. [Suspect]
     Active Substance: TACROLIMUS
     Route: 042
     Dates: start: 20161215
  13. TACROLIMUS. [Suspect]
     Active Substance: TACROLIMUS
     Dosage: 2.5 MG AM, 2 MG PM
     Route: 042
     Dates: start: 20170320
  14. INSULIN GLARGINE [Concomitant]
     Active Substance: INSULIN GLARGINE
     Indication: HYPERGLYCAEMIA
     Route: 058
  15. TACROLIMUS. [Concomitant]
     Active Substance: TACROLIMUS
     Route: 048
  16. TRIAMCINOLONE [Concomitant]
     Active Substance: TRIAMCINOLONE
     Indication: ACUTE GRAFT VERSUS HOST DISEASE IN SKIN
     Dosage: 1 APPLICATION, TWICE DAILY
     Route: 061
  17. ASP2215 [Suspect]
     Active Substance: GILTERITINIB
     Indication: ACUTE MYELOID LEUKAEMIA
     Route: 048
     Dates: start: 20160824
  18. TACROLIMUS. [Suspect]
     Active Substance: TACROLIMUS
     Route: 042
     Dates: start: 20161103
  19. TACROLIMUS. [Suspect]
     Active Substance: TACROLIMUS
     Route: 042
     Dates: start: 20161105
  20. TACROLIMUS. [Suspect]
     Active Substance: TACROLIMUS
     Route: 042
     Dates: start: 20161113, end: 20161115
  21. TACROLIMUS. [Suspect]
     Active Substance: TACROLIMUS
     Route: 042
     Dates: start: 20170112
  22. TACROLIMUS. [Suspect]
     Active Substance: TACROLIMUS
     Route: 042
     Dates: start: 20170220
  23. CLARITIN [Concomitant]
     Active Substance: LORATADINE
     Indication: PRODUCT USED FOR UNKNOWN INDICATION
     Route: 048
  24. VITAMIN D                          /00107901/ [Concomitant]
     Active Substance: ERGOCALCIFEROL
     Indication: VITAMIN D DEFICIENCY
     Route: 048
  25. FOLIC ACID. [Concomitant]
     Active Substance: FOLIC ACID
     Indication: ANAEMIA
     Route: 048
  26. INSULIN ASPART [Concomitant]
     Active Substance: INSULIN ASPART
     Indication: HYPERGLYCAEMIA
     Route: 058
  27. MAGNESIUM AMINO ACID CHELATE [Concomitant]
     Active Substance: MAGNESIUM
     Indication: DIARRHOEA
     Route: 048
  28. MAGNESIUM SULFATE. [Concomitant]
     Active Substance: MAGNESIUM SULFATE
     Indication: DIARRHOEA
     Dosage: UNK UNK, EVERY 48 HOURS
     Route: 042
  29. MAGNESIUM SULFATE. [Concomitant]
     Active Substance: MAGNESIUM SULFATE
     Indication: HYPOMAGNESAEMIA
  30. XANAX [Concomitant]
     Active Substance: ALPRAZOLAM
     Indication: INSOMNIA
     Dosage: 0.25 MG, THRICE DAILY AS NEEDED
     Route: 048
  31. TACROLIMUS. [Suspect]
     Active Substance: TACROLIMUS
     Route: 042
     Dates: start: 20170117
  32. TACROLIMUS. [Suspect]
     Active Substance: TACROLIMUS
     Route: 042
     Dates: start: 20170123
  33. PREDNISONE. [Concomitant]
     Active Substance: PREDNISONE
     Indication: ACUTE GRAFT VERSUS HOST DISEASE IN SKIN
     Route: 048
  34. PROCHLORPERAZINE. [Concomitant]
     Active Substance: PROCHLORPERAZINE
     Indication: PRODUCT USED FOR UNKNOWN INDICATION
     Dosage: 10 MG, EVERY 6 HOURS AS NEEDED
     Route: 048
  35. PROTONIX [Concomitant]
     Active Substance: PANTOPRAZOLE SODIUM
     Indication: DYSPEPSIA
     Route: 048
  36. TACROLIMUS. [Concomitant]
     Active Substance: TACROLIMUS
     Indication: ACUTE GRAFT VERSUS HOST DISEASE IN SKIN
     Dosage: UNK UNK, UNKNOWN FREQ.
     Route: 048
  37. XANAX [Concomitant]
     Active Substance: ALPRAZOLAM
     Indication: DEPRESSION
  38. POTASSIUM CHLORIDE. [Concomitant]
     Active Substance: POTASSIUM CHLORIDE
     Indication: PRODUCT USED FOR UNKNOWN INDICATION
     Route: 048
  39. TACROLIMUS. [Suspect]
     Active Substance: TACROLIMUS
     Dosage: 0.5 MG, TWICE DAILY
     Route: 042
     Dates: start: 20161202
  40. TACROLIMUS. [Suspect]
     Active Substance: TACROLIMUS
     Dosage: 0.5 MG, TWICE DAILY
     Route: 042
     Dates: start: 20161208
  41. TACROLIMUS. [Suspect]
     Active Substance: TACROLIMUS
     Route: 042
     Dates: start: 20170103
  42. TACROLIMUS. [Suspect]
     Active Substance: TACROLIMUS
     Route: 042
     Dates: start: 20170110
  43. TACROLIMUS. [Suspect]
     Active Substance: TACROLIMUS
     Route: 042
     Dates: start: 20170130
  44. TACROLIMUS. [Suspect]
     Active Substance: TACROLIMUS
     Route: 042
     Dates: start: 20170327
  45. ASPIRIN. [Concomitant]
     Active Substance: ASPIRIN
     Indication: ACUTE MYOCARDIAL INFARCTION
     Route: 048
  46. TACROLIMUS. [Suspect]
     Active Substance: TACROLIMUS
     Indication: PROPHYLAXIS AGAINST GRAFT VERSUS HOST DISEASE
     Dosage: UNK UNK, UNKNOWN FREQ.
     Route: 042
     Dates: start: 20161030
  47. TACROLIMUS. [Suspect]
     Active Substance: TACROLIMUS
     Dosage: 0.5 MG, TWICE DAILY
     Route: 042
     Dates: start: 20161204
  48. TACROLIMUS. [Suspect]
     Active Substance: TACROLIMUS
     Dosage: 0.5 MG AM, 1 MG PM
     Route: 042
     Dates: start: 20161212
  49. ACYCLOVIR                          /00587301/ [Concomitant]
     Active Substance: ACYCLOVIR
     Indication: PROPHYLAXIS
     Route: 048
  50. NOVOLOG [Concomitant]
     Active Substance: INSULIN ASPART
     Indication: HYPERGLYCAEMIA
     Dosage: UNK UNK, UNKNOWN FREQ.
     Route: 058
  51. TACROLIMUS. [Concomitant]
     Active Substance: TACROLIMUS
     Route: 048
  52. VORICONAZOLE. [Concomitant]
     Active Substance: VORICONAZOLE
     Indication: PROPHYLAXIS
     Route: 048
     Dates: end: 20170320
  53. TACROLIMUS. [Suspect]
     Active Substance: TACROLIMUS
     Route: 042
     Dates: start: 20161111
  54. TACROLIMUS. [Suspect]
     Active Substance: TACROLIMUS
     Dosage: 1.5 MG AM, 1 MG PM
     Route: 042
     Dates: start: 20161219
  55. TACROLIMUS. [Suspect]
     Active Substance: TACROLIMUS
     Dosage: 1.5 MG AM, 1 MG PM
     Route: 042
     Dates: start: 20161227
  56. TACROLIMUS. [Suspect]
     Active Substance: TACROLIMUS
     Route: 042
     Dates: start: 20161230
  57. METOPROLOL TARTRATE. [Concomitant]
     Active Substance: METOPROLOL TARTRATE
     Indication: ATRIAL FLUTTER
     Route: 048
  58. METOPROLOL TARTRATE. [Concomitant]
     Active Substance: METOPROLOL TARTRATE
     Indication: HYPERTENSION

REACTIONS (5)
  - Hyponatraemic syndrome [Recovered/Resolved]
  - Pyrexia [Recovered/Resolved]
  - Staphylococcal infection [Recovered/Resolved]
  - Pyrexia [Recovered/Resolved]
  - Headache [Recovered/Resolved]

NARRATIVE: CASE EVENT DATE: 20170311
